FAERS Safety Report 7543148-5 (Version None)
Quarter: 2011Q2

REPORT INFORMATION
  Report Type: 
  Country: None (occurrence: None)
  Receive Date: 20110613
  Receipt Date: 20110613
  Transmission Date: 20111010
  Serious: Yes (Life-Threatening, Hospitalization)
  Sender: FDA-Public Use
  Company Number: PHHO2009DE07435

PATIENT
  Sex: Male
  Weight: 76 kg

DRUGS (13)
  1. CYCLOSPORINE [Suspect]
     Indication: CHRONIC GRAFT VERSUS HOST DISEASE
     Dosage: 100 - 150 MG / DAY
     Route: 048
     Dates: start: 20080712
  2. PREDNISONE [Suspect]
     Indication: CHRONIC GRAFT VERSUS HOST DISEASE
     Dosage: E100 MG / DAY AND 15 MG EVERY OTHER DAY
     Route: 048
     Dates: start: 20080712
  3. LINOLA-FETT [Concomitant]
  4. METOPROLOL SUCCINATE [Concomitant]
  5. COTRIM [Concomitant]
  6. PANTOPRAZOLE [Concomitant]
  7. CALCIUM CARBONATE [Concomitant]
  8. ACTRAPHANE [Concomitant]
  9. PLACEBO [Suspect]
     Indication: CHRONIC GRAFT VERSUS HOST DISEASE
     Dosage: UNK
     Route: 048
     Dates: start: 20080712
  10. PROSTAFORTON [Concomitant]
  11. ROXITHROMYCIN [Concomitant]
  12. NOXAFIL [Concomitant]
  13. MAGNESIUM SULFATE [Concomitant]

REACTIONS (2)
  - PYREXIA [None]
  - ESCHERICHIA SEPSIS [None]
